FAERS Safety Report 21768274 (Version 2)
Quarter: 2023Q1

REPORT INFORMATION
  Report Type: Spontaneous
  Country: US (occurrence: US)
  Receive Date: 20221222
  Receipt Date: 20230104
  Transmission Date: 20230417
  Serious: No
  Sender: FDA-Public Use
  Company Number: US-BEIGENE USA INC-BGN-2022-011914

PATIENT

DRUGS (1)
  1. BRUKINSA [Suspect]
     Active Substance: ZANUBRUTINIB
     Indication: Product used for unknown indication
     Dosage: 80 MILLIGRAM
     Route: 048
     Dates: start: 20221114

REACTIONS (18)
  - Rash macular [Recovering/Resolving]
  - Rash papular [Recovering/Resolving]
  - Fatigue [Recovering/Resolving]
  - Heart rate increased [Unknown]
  - Pain [Not Recovered/Not Resolved]
  - Muscle spasms [Not Recovered/Not Resolved]
  - Asthenia [Unknown]
  - Cognitive disorder [Not Recovered/Not Resolved]
  - Flatulence [Recovered/Resolved]
  - Increased appetite [Unknown]
  - Neck mass [Recovered/Resolved]
  - Abdominal distension [Unknown]
  - Gastroptosis [Unknown]
  - Lymphoedema [Unknown]
  - Gait disturbance [Unknown]
  - Peripheral swelling [Unknown]
  - Drug interaction [Unknown]
  - Underdose [Unknown]
